FAERS Safety Report 18223860 (Version 1)
Quarter: 2020Q3

REPORT INFORMATION
  Report Type: Spontaneous
  Country: KR (occurrence: KR)
  Receive Date: 20200902
  Receipt Date: 20200902
  Transmission Date: 20201103
  Serious: Yes (Other)
  Sender: FDA-Public Use
  Company Number: KR-EISAI MEDICAL RESEARCH-EC-2020-079520

PATIENT
  Sex: Female
  Weight: 57 kg

DRUGS (5)
  1. KEYTRUDA [Suspect]
     Active Substance: PEMBROLIZUMAB
     Indication: ENDOMETRIAL CANCER
     Dosage: DOSE UNKNOWN
     Route: 041
     Dates: start: 20191028, end: 2020
  2. LENVIMA [Suspect]
     Active Substance: LENVATINIB
     Indication: ENDOMETRIAL CANCER
     Dosage: DOSE AND FREQUENCY UNKNOWN
     Route: 048
     Dates: start: 20191028, end: 201911
  3. KEYTRUDA [Suspect]
     Active Substance: PEMBROLIZUMAB
     Dosage: DOSE UNKNOWN
     Route: 041
     Dates: start: 2020
  4. LENVIMA [Suspect]
     Active Substance: LENVATINIB
     Route: 048
     Dates: start: 201911, end: 2020
  5. LENVIMA [Suspect]
     Active Substance: LENVATINIB
     Dosage: DOSE AND FREQUENCY UNKNOWN
     Route: 048
     Dates: start: 2020

REACTIONS (7)
  - Palpitations [Unknown]
  - Neutrophil count decreased [Unknown]
  - Product use in unapproved indication [Unknown]
  - ECG signs of myocardial infarction [Unknown]
  - Hypothyroidism [Unknown]
  - Chest pain [Unknown]
  - Blood creatine phosphokinase increased [Unknown]

NARRATIVE: CASE EVENT DATE: 201911
